FAERS Safety Report 9939548 (Version 1)
Quarter: 2014Q1

REPORT INFORMATION
  Report Type: Report from Study
  Country: US (occurrence: US)
  Receive Date: 20140303
  Receipt Date: 20140303
  Transmission Date: 20141002
  Serious: No
  Sender: FDA-Public Use
  Company Number: US-ABBVIE-13P-163-1036375-00

PATIENT
  Age: 43 Year
  Sex: Male

DRUGS (3)
  1. HUMIRA [Suspect]
     Indication: PSORIASIS
     Dates: start: 2012
  2. TYLENOL [Concomitant]
     Indication: PRODUCT USED FOR UNKNOWN INDICATION
  3. IBUPROFEN [Concomitant]
     Indication: PRODUCT USED FOR UNKNOWN INDICATION

REACTIONS (8)
  - Sleep apnoea syndrome [Unknown]
  - Injection site erythema [Unknown]
  - Injection site papule [Not Recovered/Not Resolved]
  - Injection site warmth [Unknown]
  - Injection site pruritus [Unknown]
  - Musculoskeletal pain [Unknown]
  - Device malfunction [Unknown]
  - Rotator cuff syndrome [Unknown]
